FAERS Safety Report 14046279 (Version 1)
Quarter: 2017Q4

REPORT INFORMATION
  Report Type: Spontaneous
  Country: US (occurrence: US)
  Receive Date: 20171005
  Receipt Date: 20171005
  Transmission Date: 20180321
  Serious: Yes (Disabling)
  Sender: FDA-Public Use
  Company Number: US-PROCTER_AND_GAMBLE-CIO14026917

PATIENT
  Sex: Female
  Weight: 72.56 kg

DRUGS (13)
  1. PLAVIX [Concomitant]
     Active Substance: CLOPIDOGREL BISULFATE
     Indication: THROMBOSIS PROPHYLAXIS
     Dosage: 75 MG TABLET, DAILY
     Route: 048
  2. FAMOTIDINE. [Concomitant]
     Active Substance: FAMOTIDINE
     Indication: GASTROOESOPHAGEAL REFLUX DISEASE
     Dosage: 20 MG TABLET, 2 /DAY
     Route: 048
  3. VITAMIN D                          /00107901/ [Concomitant]
     Active Substance: ERGOCALCIFEROL
     Indication: BLOOD CALCIUM DECREASED
     Dosage: 1 TABLET, DAILY
     Route: 048
  4. CREST [Suspect]
     Active Substance: SODIUM FLUORIDE
     Dosage: JUST A LITTLE BIT DAILY
     Route: 002
  5. ATENOLOL. [Concomitant]
     Active Substance: ATENOLOL
     Indication: HYPERTENSION
     Dosage: 50 MG TABLET, 2 /DAY
     Route: 048
  6. CREST CAVITY PROTECTION REGULAR [Suspect]
     Active Substance: SODIUM FLUORIDE
     Dosage: JUST A LITTLE BIT DAILY
     Route: 002
  7. DIOVAN [Concomitant]
     Active Substance: VALSARTAN
     Indication: HYPERTENSION
     Dosage: 80 MG (2X40MG TABLETS), 2 /DAY
     Route: 048
  8. MVI [Concomitant]
     Active Substance: VITAMINS
  9. CREST CAVITY PROTECTION REGULAR [Suspect]
     Active Substance: SODIUM FLUORIDE
     Dosage: ABOUT 3/4 OF BRISTLE AREA AND RECENTLY DECREASED AMOUNT ON TOOTHBRUSH; TWICE A DAY
     Route: 002
  10. ATIVAN [Concomitant]
     Active Substance: LORAZEPAM
     Indication: HEART RATE INCREASED
     Dosage: 0.5 MG TABLET, 2 /DAY
     Route: 048
  11. OCUVITE LUTEIN                     /02380501/ [Concomitant]
     Indication: PROPHYLAXIS
     Dosage: 1 TABLET, DAILY
     Route: 048
  12. LISTERINE ORIGINAL [Suspect]
     Active Substance: EUCALYPTOL\MENTHOL\METHYL SALICYLATE\THYMOL
     Indication: DENTAL PROSTHESIS USER
     Route: 002
  13. ASPIRIN. [Concomitant]
     Active Substance: ASPIRIN
     Dosage: 81 MG, UNK

REACTIONS (2)
  - Tongue disorder [Not Recovered/Not Resolved]
  - Ageusia [Not Recovered/Not Resolved]
